FAERS Safety Report 6669151-5 (Version None)
Quarter: 2010Q2

REPORT INFORMATION
  Report Type: 
  Country: None (occurrence: None)
  Receive Date: 20100406
  Receipt Date: 20100326
  Transmission Date: 20101027
  Serious: Yes (Hospitalization)
  Sender: FDA-Public Use
  Company Number: JP-MERCK-1003USA00648

PATIENT
  Age: 80 Year
  Sex: Female

DRUGS (5)
  1. PEPCID INJECTION [Suspect]
     Indication: GASTRIC ULCER
     Route: 042
     Dates: start: 20100113, end: 20100122
  2. PEPCID INJECTION [Suspect]
     Route: 042
     Dates: start: 20100130, end: 20100204
  3. ZOSYN [Suspect]
     Indication: PNEUMONIA
     Route: 042
     Dates: start: 20100110, end: 20100122
  4. ZOSYN [Suspect]
     Route: 042
     Dates: start: 20100127, end: 20100207
  5. MINOCYCLINE HYDROCHLORIDE [Concomitant]
     Route: 065
     Dates: start: 20100118, end: 20100127

REACTIONS (1)
  - HAEMOLYTIC ANAEMIA [None]
